FAERS Safety Report 9402497 (Version 1)
Quarter: 2013Q3

REPORT INFORMATION
  Report Type: Spontaneous
  Country: US (occurrence: None)
  Receive Date: 20130712
  Receipt Date: 20130712
  Transmission Date: 20140515
  Serious: No
  Sender: FDA-Public Use
  Company Number: None

PATIENT
  Age: 61 None
  Sex: Female

DRUGS (4)
  1. SIMVASTATIN [Suspect]
     Indication: BLOOD CHOLESTEROL INCREASED
     Route: 048
     Dates: start: 2013
  2. LEVOTHYROXINE [Concomitant]
  3. NATURE^S BOUNT VITAMIN E-3 [Concomitant]
  4. NATURES MADE SUBLINGULA B-12 [Concomitant]

REACTIONS (1)
  - Product substitution issue [None]
